FAERS Safety Report 11612175 (Version 5)
Quarter: 2018Q2

REPORT INFORMATION
  Report Type: Spontaneous
  Country: ES (occurrence: ES)
  Receive Date: 20151008
  Receipt Date: 20180502
  Transmission Date: 20180711
  Serious: Yes (Hospitalization, Other)
  Sender: FDA-Public Use
  Company Number: ES-JNJFOC-20151004408

PATIENT
  Age: 56 Year
  Sex: Female

DRUGS (10)
  1. GABAPENTIN. [Suspect]
     Active Substance: GABAPENTIN
     Indication: NEURALGIA
     Route: 065
  2. GABAPENTIN. [Suspect]
     Active Substance: GABAPENTIN
     Indication: NEURALGIA
     Route: 065
  3. AMITRIPTYLINE [Suspect]
     Active Substance: AMITRIPTYLINE
     Indication: NEURALGIA
     Route: 065
  4. DULOXETINE. [Suspect]
     Active Substance: DULOXETINE
     Indication: ANXIETY
     Route: 065
  5. TRAMADOL HYDROCHLORIDE. [Suspect]
     Active Substance: TRAMADOL HYDROCHLORIDE
     Indication: NEURALGIA
     Route: 065
  6. ACETAMINOPHEN. [Concomitant]
     Active Substance: ACETAMINOPHEN
     Indication: NEURALGIA
     Route: 065
  7. TRAMADOL HYDROCHLORIDE. [Suspect]
     Active Substance: TRAMADOL HYDROCHLORIDE
     Indication: NEURALGIA
     Route: 065
  8. GABAPENTIN. [Suspect]
     Active Substance: GABAPENTIN
     Indication: NEURALGIA
     Route: 065
  9. GABAPENTIN. [Suspect]
     Active Substance: GABAPENTIN
     Indication: NEURALGIA
     Route: 065
  10. DULOXETINE. [Suspect]
     Active Substance: DULOXETINE
     Indication: DEPRESSION
     Route: 065

REACTIONS (8)
  - Drug hypersensitivity [Unknown]
  - Delusion [Recovered/Resolved]
  - Rash pruritic [Recovered/Resolved]
  - Psychotic disorder due to a general medical condition [Recovered/Resolved]
  - Hypertension [Recovered/Resolved]
  - Drug intolerance [Unknown]
  - Psychotic disorder [Recovered/Resolved]
  - Hallucination, visual [Recovered/Resolved]
